FAERS Safety Report 19362443 (Version 2)
Quarter: 2022Q2

REPORT INFORMATION
  Report Type: Spontaneous
  Country: US (occurrence: US)
  Receive Date: 20210602
  Receipt Date: 20220429
  Transmission Date: 20220721
  Serious: No
  Sender: FDA-Public Use
  Company Number: US-PFIZER INC-2016516821

PATIENT
  Age: 64 Year
  Sex: Female

DRUGS (14)
  1. LYRICA [Suspect]
     Active Substance: PREGABALIN
     Indication: Pain
     Dosage: 75 MG, THREE TIMES A DAY
  2. LYRICA [Suspect]
     Active Substance: PREGABALIN
     Indication: Arthralgia
  3. LYRICA [Suspect]
     Active Substance: PREGABALIN
     Indication: Radiculopathy
  4. LYRICA [Suspect]
     Active Substance: PREGABALIN
     Indication: Myositis
  5. LYRICA [Suspect]
     Active Substance: PREGABALIN
     Indication: Analgesic intervention supportive therapy
  6. LYRICA [Suspect]
     Active Substance: PREGABALIN
     Indication: Pain in extremity
  7. AMITIZA [Concomitant]
     Active Substance: LUBIPROSTONE
     Dosage: 24 UG, AS NEEDED (TAKE 1 TWO TIMES A DAY)
  8. COLACE [Concomitant]
     Active Substance: DOCUSATE SODIUM
     Dosage: 100 MG, UNK (5X/DAY)
  9. METHADONE HYDROCHLORIDE [Concomitant]
     Active Substance: METHADONE HYDROCHLORIDE
     Dosage: 10 MG, 4X/DAY
  10. CETIRIZINE HCL [Concomitant]
     Active Substance: CETIRIZINE HYDROCHLORIDE
     Dosage: 10 MG, 1X/DAY
  11. EFFEXOR XR [Concomitant]
     Active Substance: VENLAFAXINE HYDROCHLORIDE
     Dosage: 150 MG, 1X/DAY (2 TAKE 1 DAILY)
  12. SYNTHROID [Concomitant]
     Active Substance: LEVOTHYROXINE SODIUM
     Dosage: 112 UG, UNK
  13. ZOLOFT [Concomitant]
     Active Substance: SERTRALINE HYDROCHLORIDE
     Dosage: UNK UNK, DAILY (1.5 )
  14. ALPRAZOLAM [Concomitant]
     Active Substance: ALPRAZOLAM
     Dosage: UNK UNK, AS NEEDED

REACTIONS (3)
  - Intentional product misuse [Unknown]
  - Illness [Unknown]
  - Pain [Unknown]
